FAERS Safety Report 8428862-1 (Version None)
Quarter: 2012Q2

REPORT INFORMATION
  Report Type: 
  Country: None (occurrence: None)
  Receive Date: 20120531
  Receipt Date: 20120524
  Transmission Date: 20120825
  Serious: Yes (Hospitalization)
  Sender: FDA-Public Use
  Company Number: 2007SP004872

PATIENT
  Age: 47 Year
  Sex: Male
  Weight: 67.5 kg

DRUGS (1)
  1. TEMOZOLOMIDE [Suspect]
     Indication: GLIOMA
     Dosage: 140 MG;QD;PO
     Route: 048
     Dates: start: 20070226, end: 20070309

REACTIONS (1)
  - INTRACRANIAL TUMOUR HAEMORRHAGE [None]
